FAERS Safety Report 26175433 (Version 1)
Quarter: 2025Q4

REPORT INFORMATION
  Report Type: Report from Study
  Country: EG (occurrence: EG)
  Receive Date: 20251218
  Receipt Date: 20251218
  Transmission Date: 20260118
  Serious: Yes (Other)
  Sender: MERCK KGAA
  Company Number: EG-Merck Healthcare KGaA-2025064027

PATIENT
  Age: 30 Year
  Sex: Female

DRUGS (1)
  1. MAVENCLAD [Suspect]
     Active Substance: CLADRIBINE
     Indication: Multiple sclerosis
     Dosage: 17 TABLETS FOR 1 YEAR ONLY
     Dates: start: 20220414, end: 20240518

REACTIONS (1)
  - CSF pressure increased [Recovered/Resolved]

NARRATIVE: CASE EVENT DATE: 20240501
